FAERS Safety Report 7200828-9 (Version None)
Quarter: 2010Q4

REPORT INFORMATION
  Report Type: 
  Country: None (occurrence: None)
  Receive Date: 20101228
  Receipt Date: 20101224
  Transmission Date: 20110411
  Serious: Yes (Other)
  Sender: FDA-Public Use
  Company Number: JP-PFIZER INC-2010179260

PATIENT
  Age: 78 Year
  Sex: Female

DRUGS (6)
  1. HALCION [Suspect]
     Indication: INSOMNIA
     Dosage: 0.25 MG, 1X/DAY
     Route: 048
  2. NAUZELIN [Concomitant]
  3. TAGAMET [Concomitant]
  4. SELBEX [Concomitant]
  5. MEVALOTIN [Concomitant]
  6. ALFAROL [Concomitant]

REACTIONS (1)
  - COGNITIVE DISORDER [None]
